FAERS Safety Report 23352665 (Version 1)
Quarter: 2023Q4

REPORT INFORMATION
  Report Type: Report from Study
  Country: IT (occurrence: IT)
  Receive Date: 20231230
  Receipt Date: 20231230
  Transmission Date: 20240110
  Serious: Yes (Death, Life-Threatening, Hospitalization, Other)
  Sender: FDA-Public Use
  Company Number: IT-Vifor (International) Inc.-VIT-2023-09110

PATIENT
  Age: 15 Year
  Sex: Female
  Weight: 47 kg

DRUGS (3)
  1. AVACOPAN [Suspect]
     Active Substance: AVACOPAN
     Indication: Granulomatosis with polyangiitis
     Dosage: 20 MILLIGRAM, QD
     Route: 048
     Dates: start: 20231111, end: 202311
  2. PREDNISONE [Suspect]
     Active Substance: PREDNISONE
     Indication: Product used for unknown indication
     Dosage: 50 MILLIGRAM
     Route: 065
  3. RITUXIMAB [Concomitant]
     Active Substance: RITUXIMAB
     Dosage: 560 MILLIGRAM (HIGH DOSE (375 MG X 4 WEEKS))
     Route: 042
     Dates: start: 20231117

REACTIONS (15)
  - Cerebral haemorrhage [Fatal]
  - Pseudomonas infection [Recovering/Resolving]
  - Haemophagocytic lymphohistiocytosis [Recovering/Resolving]
  - Multiple organ dysfunction syndrome [Recovering/Resolving]
  - Pyrexia [Recovering/Resolving]
  - Septic shock [Recovering/Resolving]
  - Condition aggravated [Unknown]
  - Somnolence [Unknown]
  - Pyrexia [Unknown]
  - Infection [Unknown]
  - Joint swelling [Unknown]
  - Cytomegalovirus infection [Unknown]
  - Arthralgia [Unknown]
  - Alanine aminotransferase increased [Unknown]
  - Off label use [Unknown]

NARRATIVE: CASE EVENT DATE: 20231101
